FAERS Safety Report 8406190-8 (Version None)
Quarter: 2012Q2

REPORT INFORMATION
  Report Type: 
  Country: None (occurrence: None)
  Receive Date: 20120604
  Receipt Date: 20120525
  Transmission Date: 20120825
  Serious: Yes (Hospitalization, Other)
  Sender: FDA-Public Use
  Company Number: US-BAYER-2012-044620

PATIENT
  Age: 38 Year
  Sex: Female
  Weight: 77.098 kg

DRUGS (9)
  1. COREG [Concomitant]
     Dosage: 12.5 MG, BID
  2. YAZ [Suspect]
     Indication: ACNE
     Dosage: UNK
     Dates: start: 20080916, end: 20081029
  3. SARAFEM [Concomitant]
     Dosage: 20 MG, QD
     Route: 048
     Dates: start: 20080916
  4. YAZ [Suspect]
     Indication: PREMENSTRUAL SYNDROME
  5. AVANDAMET [Concomitant]
     Dosage: 1000 MG, BID
     Route: 048
  6. YAZ [Suspect]
  7. BENAZEPRIL HYDROCHLORIDE [Concomitant]
     Dosage: 20 MG, QD
     Route: 048
  8. ZOCOR [Concomitant]
     Dosage: 20 MG, QD
     Route: 048
  9. NORVASC [Concomitant]
     Dosage: 10 MG, QD
     Route: 048

REACTIONS (9)
  - PULMONARY EMBOLISM [None]
  - ABDOMINAL PAIN UPPER [None]
  - MENTAL DISORDER [None]
  - ARRHYTHMIA [None]
  - GALLBLADDER INJURY [None]
  - INJURY [None]
  - PAIN [None]
  - CHEST PAIN [None]
  - CEREBROVASCULAR ACCIDENT [None]
